FAERS Safety Report 21521286 (Version 2)
Quarter: 2022Q4

REPORT INFORMATION
  Report Type: Spontaneous
  Country: US (occurrence: US)
  Receive Date: 20221028
  Receipt Date: 20221102
  Transmission Date: 20230113
  Serious: Yes (Death, Other)
  Sender: FDA-Public Use
  Company Number: US-ABBVIE-4179053

PATIENT
  Age: 79 Year
  Sex: Female
  Weight: 40.369 kg

DRUGS (1)
  1. IMBRUVICA [Suspect]
     Active Substance: IBRUTINIB
     Indication: Chronic lymphocytic leukaemia
     Dosage: START DATE TEXT END OF 20 OR BEGINNING OF 21
     Route: 048
     Dates: end: 20220203

REACTIONS (7)
  - Road traffic accident [Fatal]
  - Multiple injuries [Fatal]
  - Diabetes mellitus [Unknown]
  - Chronic lymphocytic leukaemia [Unknown]
  - Hypertension [Unknown]
  - Weight decreased [Unknown]
  - Cardiac arrest [Fatal]

NARRATIVE: CASE EVENT DATE: 20220204
